FAERS Safety Report 17067246 (Version 2)
Quarter: 2019Q4

REPORT INFORMATION
  Report Type: Report from Study
  Country: US (occurrence: US)
  Receive Date: 20191122
  Receipt Date: 20191226
  Transmission Date: 20200122
  Serious: Yes (Hospitalization)
  Sender: FDA-Public Use
  Company Number: US-ACTELION-A-NJ2019-198088

PATIENT
  Age: 79 Year
  Sex: Female

DRUGS (6)
  1. PANTOPRAZOLE [Concomitant]
     Active Substance: PANTOPRAZOLE
     Dosage: 20 MG, QD
     Dates: start: 2019
  2. OPSUMIT [Suspect]
     Active Substance: MACITENTAN
     Indication: PULMONARY HYPERTENSION
     Dosage: 10 MG, QD
     Route: 048
     Dates: start: 201910
  3. XARELTO [Concomitant]
     Active Substance: RIVAROXABAN
     Dosage: 20 MG, QD
     Dates: start: 2018
  4. SILDENAFIL. [Concomitant]
     Active Substance: SILDENAFIL
     Dosage: 20 MG, TID
  5. SPIRONOLACTONE. [Concomitant]
     Active Substance: SPIRONOLACTONE
     Dosage: 25 MG, BID
  6. BUMETANIDE. [Concomitant]
     Active Substance: BUMETANIDE
     Dosage: 1 MG, BID

REACTIONS (13)
  - Hypersensitivity [Unknown]
  - Asthenia [Unknown]
  - Hyperventilation [Unknown]
  - Gait disturbance [Unknown]
  - Hospitalisation [Unknown]
  - Chest X-ray abnormal [Unknown]
  - Dyspnoea [Unknown]
  - Transfusion [Recovered/Resolved]
  - Malaise [Unknown]
  - Haemoglobin decreased [Recovered/Resolved]
  - Hypotension [Unknown]
  - Fatigue [Unknown]
  - Product dose omission [Unknown]

NARRATIVE: CASE EVENT DATE: 201910
